FAERS Safety Report 10279773 (Version 2)
Quarter: 2014Q3

REPORT INFORMATION
  Report Type: Report from Study
  Country: GB (occurrence: None)
  Receive Date: 20140702
  Receipt Date: 20140722
  Transmission Date: 20150326
  Serious: Yes (Other)
  Sender: FDA-Public Use
  Company Number: 2014CYTGB00001

PATIENT
  Age: 60 Year
  Sex: Female

DRUGS (6)
  1. CYTARABINE (CYTARABINE) LIPOSOME INJECTABLE SUSPENSION [Suspect]
     Active Substance: CYTARABINE
     Indication: ACUTE MYELOID LEUKAEMIA
     Dosage: CYCLICAL DOSE: ^1/1 CYCLICAL^, UNKNOWN
     Dates: end: 20140514
  2. MYLOTARG [Suspect]
     Active Substance: GEMTUZUMAB OZOGAMICIN
     Indication: MYELODYSPLASTIC SYNDROME
     Dosage: CYCLICAL DOSE: ^1/1CYCLICAL^, UNKNOWN
     Dates: end: 20140514
  3. DAUNORUBICIN (DAUNORUBICIN) [Suspect]
     Active Substance: DAUNORUBICIN
     Indication: ACUTE MYELOID LEUKAEMIA
     Dosage: CYCLICAL DOSE: ^1/1 CYCLICAL, UNKNOWN
     Dates: end: 20140514
  4. CYTARABINE (CYTARABINE) LIPOSOME INJECTABLE SUSPENSION [Suspect]
     Active Substance: CYTARABINE
     Indication: MYELODYSPLASTIC SYNDROME
     Dosage: CYCLICAL DOSE: ^1/1 CYCLICAL^, UNKNOWN
     Dates: end: 20140514
  5. DAUNORUBICIN (DAUNORUBICIN) [Suspect]
     Active Substance: DAUNORUBICIN
     Indication: MYELODYSPLASTIC SYNDROME
     Dosage: CYCLICAL DOSE: ^1/1 CYCLICAL, UNKNOWN
     Dates: end: 20140514
  6. MYLOTARG [Suspect]
     Active Substance: GEMTUZUMAB OZOGAMICIN
     Indication: ACUTE MYELOID LEUKAEMIA
     Dosage: CYCLICAL DOSE: ^1/1CYCLICAL^, UNKNOWN
     Dates: end: 20140514

REACTIONS (2)
  - Infection [None]
  - Blood disorder [None]

NARRATIVE: CASE EVENT DATE: 20140512
